FAERS Safety Report 8031466-6 (Version None)
Quarter: 2012Q1

REPORT INFORMATION
  Report Type: 
  Country: None (occurrence: None)
  Receive Date: 20120109
  Receipt Date: 20120105
  Transmission Date: 20120608
  Serious: Yes (Life-Threatening)
  Sender: FDA-Public Use
  Company Number: FR-ABBOTT-11P-056-0885918-00

PATIENT
  Age: 48 Year
  Sex: Female

DRUGS (1)
  1. DEPAKENE [Suspect]
     Indication: PROPHYLAXIS
     Route: 048
     Dates: start: 20020705, end: 20020807

REACTIONS (1)
  - HEPATITIS FULMINANT [None]
